FAERS Safety Report 25104662 (Version 1)
Quarter: 2025Q1

REPORT INFORMATION
  Report Type: Report from Study
  Country: US (occurrence: US)
  Receive Date: 20250321
  Receipt Date: 20250321
  Transmission Date: 20250409
  Serious: Yes (Hospitalization)
  Sender: MYLAN
  Company Number: US-MYLANLABS-2025M1023047

PATIENT
  Age: 119 Month
  Sex: Male

DRUGS (4)
  1. ETOPOSIDE [Suspect]
     Active Substance: ETOPOSIDE
     Indication: Medulloblastoma recurrent
     Dosage: 50 MILLIGRAM/SQ. METER, 28D CYCLE (~50 MG/M2/DOSE ON DAY 1-7 IN 28 DAYS CYCLE)
  2. IRINOTECAN [Suspect]
     Active Substance: IRINOTECAN
     Indication: Medulloblastoma recurrent
     Dosage: 125 MILLIGRAM/SQ. METER, 28D CYCLE (125 MG/M2/DOSE ON DAY 1 AND 8 IN 28 DAYS CYCLE)
  3. CYCLOPHOSPHAMIDE [Suspect]
     Active Substance: CYCLOPHOSPHAMIDE
     Indication: Medulloblastoma recurrent
     Dosage: 1500 MILLIGRAM/SQ. METER, 28D CYCLE (1500 MG/M2/DOSE ON DAY 1 AND 2 IN 28 DAYS CYCLE)
  4. TEMOZOLOMIDE [Suspect]
     Active Substance: TEMOZOLOMIDE
     Indication: Medulloblastoma recurrent
     Dosage: 150 MILLIGRAM/SQ. METER, 28D CYCLE (~150 MG/M2/DOSE ON DAY 1-5 IN 28 DAYS CYCLE)

REACTIONS (4)
  - Sepsis [Unknown]
  - Infection [Unknown]
  - Febrile neutropenia [Unknown]
  - Myelosuppression [Unknown]
